FAERS Safety Report 8169603-5 (Version None)
Quarter: 2012Q1

REPORT INFORMATION
  Report Type: 
  Country: None (occurrence: None)
  Receive Date: 20120228
  Receipt Date: 20120216
  Transmission Date: 20120608
  Serious: Yes (Other)
  Sender: FDA-Public Use
  Company Number: US-BAYER-2011-114259

PATIENT
  Age: 21 Year
  Sex: Female
  Weight: 82 kg

DRUGS (7)
  1. ZITHROMAX [Concomitant]
     Indication: SINUSITIS
     Dosage: UNK
     Route: 048
     Dates: start: 20060701
  2. YASMIN [Suspect]
     Indication: ORAL CONTRACEPTION
     Dosage: UNK
     Dates: start: 20000101, end: 20060801
  3. CLARITIN-D [Concomitant]
     Indication: MULTIPLE ALLERGIES
  4. IBUPROFEN (ADVIL) [Concomitant]
     Indication: PAIN
     Dosage: 2 TABS, PRN
     Route: 048
  5. MULTI-VITAMINS [Concomitant]
     Indication: VITAMIN SUPPLEMENTATION
     Route: 048
  6. CLARITIN-D [Concomitant]
     Indication: NASAL CONGESTION
     Dosage: UNK
     Route: 048
     Dates: start: 20060701
  7. IBUPROFEN (ADVIL) [Concomitant]
     Indication: HEADACHE

REACTIONS (3)
  - DEEP VEIN THROMBOSIS [None]
  - INJURY [None]
  - PAIN [None]
